FAERS Safety Report 10223016 (Version 1)
Quarter: 2014Q2

REPORT INFORMATION
  Report Type: Spontaneous
  Country: DE (occurrence: DE)
  Receive Date: 20140607
  Receipt Date: 20140607
  Transmission Date: 20141212
  Serious: Yes (Other)
  Sender: FDA-Public Use
  Company Number: PHHY2014DE065514

PATIENT
  Age: 48 Year
  Sex: Male
  Weight: 88 kg

DRUGS (4)
  1. IMATINIB [Suspect]
     Indication: GASTROINTESTINAL STROMAL TUMOUR
     Dosage: 400 MG, PER DAY
     Dates: start: 200901, end: 201012
  2. IMATINIB [Suspect]
     Dosage: 400 MG, PERDAY
     Dates: start: 201104, end: 201108
  3. IMATINIB [Suspect]
     Dosage: 800 MG, PER DAY
     Dates: start: 201108
  4. REGORAFENIB [Concomitant]
     Dosage: 160 MG, PER DAY
     Dates: start: 201305

REACTIONS (9)
  - Gastrointestinal stromal tumour [Unknown]
  - Diarrhoea [Unknown]
  - Abdominal pain [Unknown]
  - Neoplasm recurrence [Unknown]
  - Metastases to liver [Unknown]
  - Malignant neoplasm progression [Unknown]
  - Pollakiuria [Unknown]
  - Dysuria [Unknown]
  - Abnormal faeces [Unknown]
